FAERS Safety Report 9775945 (Version 1)
Quarter: 2013Q4

REPORT INFORMATION
  Report Type: Spontaneous
  Country: GB (occurrence: GB)
  Receive Date: 20131220
  Receipt Date: 20131220
  Transmission Date: 20140711
  Serious: Yes (Life-Threatening, Hospitalization)
  Sender: FDA-Public Use
  Company Number: GB-PFIZER INC-2013364753

PATIENT
  Age: 77 Year
  Sex: 0

DRUGS (10)
  1. CITALOPRAM [Suspect]
     Dosage: 20 MG, UNK
     Route: 048
  2. HYDROCORTISONE [Suspect]
     Dosage: 10 MG, UNK
     Route: 048
  3. EXJADE [Suspect]
     Dosage: 1.5 G, DAILY
     Route: 048
     Dates: start: 20120910, end: 20131010
  4. MORPHINE SULFATE [Concomitant]
     Dosage: UNK, 5-10ML HOURLY AS NEEDED.
     Route: 048
  5. SITAGLIPTIN [Concomitant]
     Dosage: 100 MG, UNK
     Route: 048
  6. PREGABALIN [Concomitant]
     Dosage: 75 MG, UNK
     Route: 048
  7. CO-CODAMOL [Concomitant]
     Dosage: UNK, 30MG/500MG
     Route: 048
  8. BECLOMETASONE [Concomitant]
     Dosage: 100 UG, UNK
     Route: 055
  9. SALBUTAMOL [Concomitant]
     Dosage: 100 UG, UNK
     Route: 055
  10. HYDROXYCARBAMIDE [Concomitant]
     Dosage: 500 MG, UNK
     Route: 048

REACTIONS (5)
  - Duodenal ulcer haemorrhage [Unknown]
  - Dizziness [Recovered/Resolved]
  - Haematemesis [Recovered/Resolved]
  - Melaena [Unknown]
  - Deep vein thrombosis [Unknown]
